FAERS Safety Report 5273910-3 (Version None)
Quarter: 2007Q1

REPORT INFORMATION
  Report Type: 
  Country: None (occurrence: None)
  Receive Date: 20070323
  Receipt Date: 20070313
  Transmission Date: 20070707
  Serious: Yes (Other)
  Sender: FDA-Public Use
  Company Number: PHNU2007DE01183

PATIENT
  Age: 48 Year
  Sex: Female

DRUGS (4)
  1. ZOMETA [Suspect]
     Indication: METASTASES TO BONE
     Dosage: 4 MG, QMO
     Route: 042
     Dates: start: 20031201, end: 20070312
  2. AREDIA [Suspect]
     Indication: METASTASES TO BONE
     Dosage: 1 DF, QMO
     Route: 042
     Dates: start: 20000101, end: 20000801
  3. CLODRONIC ACID [Suspect]
     Indication: METASTASES TO BONE
     Route: 042
     Dates: start: 20000801, end: 20031201
  4. FASLODEX [Concomitant]
     Route: 065
     Dates: start: 20061201

REACTIONS (10)
  - ARTHRALGIA [None]
  - DENTAL TREATMENT [None]
  - IMPAIRED HEALING [None]
  - INFLAMMATION [None]
  - MYALGIA [None]
  - OSTEONECROSIS [None]
  - PAIN IN JAW [None]
  - SWELLING [None]
  - TOOTH EXTRACTION [None]
  - X-RAY ABNORMAL [None]
